FAERS Safety Report 6892198-0 (Version None)
Quarter: 2010Q3

REPORT INFORMATION
  Report Type: 
  Country: None (occurrence: None)
  Receive Date: 20100731
  Receipt Date: 20080312
  Transmission Date: 20110219
  Serious: No
  Sender: FDA-Public Use
  Company Number: US-PFIZER INC-2008024095

PATIENT
  Sex: Female
  Weight: 95.3 kg

DRUGS (8)
  1. NEURONTIN [Suspect]
     Indication: BACK PAIN
     Dates: start: 20070101, end: 20071201
  2. LYRICA [Suspect]
     Indication: BACK PAIN
     Dates: start: 20071201
  3. CHANTIX [Suspect]
     Indication: SMOKING CESSATION THERAPY
     Dates: start: 20070101, end: 20080101
  4. BACLOFEN [Concomitant]
  5. SYNTHROID [Concomitant]
  6. VICODIN [Concomitant]
  7. MULTI-VITAMINS [Concomitant]
  8. CALCIUM [Concomitant]

REACTIONS (6)
  - DEPRESSION [None]
  - DRUG WITHDRAWAL SYNDROME [None]
  - DYSPNOEA [None]
  - FEELING ABNORMAL [None]
  - HYPOAESTHESIA [None]
  - MEMORY IMPAIRMENT [None]
